FAERS Safety Report 8863008 (Version 1)
Quarter: 2012Q4

REPORT INFORMATION
  Report Type: 
  Country: US (occurrence: US)
  Receive Date: 20121026
  Receipt Date: 20121026
  Transmission Date: 20130627
  Serious: No
  Sender: FDA-Public Use
  Company Number: US-ALLERGAN-1201810US

PATIENT
  Sex: Female

DRUGS (3)
  1. ALPHAGAN P [Suspect]
     Indication: INTRAOCULAR PRESSURE HIGH
     Dosage: 1 Gtt, tid
     Dates: start: 201112
  2. TEARS NATURAL FREE [Concomitant]
     Indication: DRY EYES
     Dosage: UNK
  3. SYSTANE [Concomitant]
     Indication: DRY EYES
     Dosage: UNK

REACTIONS (18)
  - Liver injury [Not Recovered/Not Resolved]
  - Renal disorder [Not Recovered/Not Resolved]
  - Chest pain [Recovering/Resolving]
  - Abdominal pain upper [Recovering/Resolving]
  - Abdominal distension [Recovering/Resolving]
  - Salt craving [Not Recovered/Not Resolved]
  - Hypoaesthesia teeth [Recovering/Resolving]
  - Toothache [Recovering/Resolving]
  - Gingival swelling [Recovering/Resolving]
  - Dysgeusia [Recovering/Resolving]
  - Dry throat [Unknown]
  - Vitreous floaters [Recovering/Resolving]
  - Nasal dryness [Recovering/Resolving]
  - Dyspepsia [Unknown]
  - Headache [Unknown]
  - Somnolence [Recovering/Resolving]
  - Dry eye [Not Recovered/Not Resolved]
  - Ocular hyperaemia [Not Recovered/Not Resolved]
